FAERS Safety Report 15826927 (Version 1)
Quarter: 2019Q1

REPORT INFORMATION
  Report Type: Spontaneous
  Country: US (occurrence: US)
  Receive Date: 20190115
  Receipt Date: 20190115
  Transmission Date: 20190417
  Serious: Yes (Hospitalization, Other)
  Sender: FDA-Public Use
  Company Number: US-B.I. PHARMACEUTICALS,INC./RIDGEFIELD-2019-BI-001207

PATIENT
  Sex: Female

DRUGS (3)
  1. SPIRIVA [Suspect]
     Active Substance: TIOTROPIUM BROMIDE MONOHYDRATE
     Indication: DYSPNOEA
     Dosage: ONE CAPSULE DAILY;  FORM STRENGTH: 18 MCG; FORMULATION: CAPSULE ACTION(S) TAKENT: DRUG WITHDRAWN
     Route: 055
     Dates: start: 2017
  2. DOFETILIDE. [Concomitant]
     Active Substance: DOFETILIDE
     Indication: PRODUCT USED FOR UNKNOWN INDICATION
     Dosage: ONE CAPSULE TWICE A DAY;  FORM STRENGTH: 250MCG; FORMULATION: CAPSULE
     Route: 048
  3. ELIQUIS [Concomitant]
     Active Substance: APIXABAN
     Indication: PRODUCT USED FOR UNKNOWN INDICATION
     Dosage: ONE TABLET TWICE A DAY;  FORMULATION: TABLET;
     Route: 048

REACTIONS (6)
  - Haemorrhage [Unknown]
  - Visual impairment [Unknown]
  - Atrial fibrillation [Unknown]
  - Pruritus [Unknown]
  - Malaise [Unknown]
  - Macular degeneration [Unknown]
